FAERS Safety Report 5753018-0 (Version None)
Quarter: 2008Q2

REPORT INFORMATION
  Report Type: 
  Country: None (occurrence: None)
  Receive Date: 20080523
  Receipt Date: 20080512
  Transmission Date: 20081010
  Serious: Yes (Hospitalization)
  Sender: FDA-Public Use
  Company Number: 1-16146901/MED-08102

PATIENT
  Age: 61 Year
  Sex: Male

DRUGS (4)
  1. BACTRIM [Suspect]
     Indication: PNEUMONIA
     Dosage: ORAL
     Route: 048
     Dates: start: 20041001, end: 20041101
  2. BACTRIM [Suspect]
     Indication: PROPHYLACTIC CHEMOTHERAPY
     Dosage: ORAL
     Route: 048
     Dates: start: 20041001, end: 20041101
  3. CYCLOPHOSPHAMIDE [Suspect]
     Indication: SCLERODERMA
     Dosage: ORAL
     Route: 048
     Dates: start: 20040801, end: 20041101
  4. LOW DOSE CORTICOSTEROID (DOSES AND PRODUCT NOT REPORTED) [Concomitant]

REACTIONS (4)
  - DERMATITIS EXFOLIATIVE [None]
  - DRUG RASH WITH EOSINOPHILIA AND SYSTEMIC SYMPTOMS [None]
  - INTERSTITIAL LUNG DISEASE [None]
  - VIRAL INFECTION [None]
